FAERS Safety Report 13027534 (Version 1)
Quarter: 2016Q4

REPORT INFORMATION
  Report Type: Spontaneous
  Country: CH (occurrence: CH)
  Receive Date: 20161214
  Receipt Date: 20161214
  Transmission Date: 20170207
  Serious: Yes (Death, Hospitalization)
  Sender: FDA-Public Use
  Company Number: CH-JNJFOC-20161210736

PATIENT
  Age: 84 Year
  Sex: Female

DRUGS (11)
  1. XARELTO [Suspect]
     Active Substance: RIVAROXABAN
     Indication: ATRIAL FIBRILLATION
     Route: 048
     Dates: start: 201606, end: 20161028
  2. METOLAZONE. [Suspect]
     Active Substance: METOLAZONE
     Indication: CARDIAC FAILURE
     Route: 048
     Dates: end: 20161028
  3. MACROGOL [Concomitant]
     Active Substance: POLYETHYLENE GLYCOLS
     Route: 065
     Dates: end: 20161028
  4. METOPROLOL. [Suspect]
     Active Substance: METOPROLOL
     Indication: ATRIAL FIBRILLATION
     Route: 048
     Dates: start: 20160624, end: 20161028
  5. TORASEMID [Suspect]
     Active Substance: TORSEMIDE
     Indication: CARDIAC FAILURE
     Route: 048
     Dates: end: 20161028
  6. CANDESARTAN [Suspect]
     Active Substance: CANDESARTAN
     Indication: CARDIAC FAILURE
     Route: 048
     Dates: start: 201604, end: 20161027
  7. METAMIZOLE [Suspect]
     Active Substance: METAMIZOLE
     Indication: PAIN
     Route: 048
     Dates: start: 20160929, end: 20161027
  8. PANTOPRAZOLE [Suspect]
     Active Substance: PANTOPRAZOLE SODIUM
     Indication: PRODUCT USED FOR UNKNOWN INDICATION
     Route: 048
     Dates: start: 201606, end: 20161028
  9. METFORMIN [Suspect]
     Active Substance: METFORMIN HYDROCHLORIDE
     Indication: TYPE 2 DIABETES MELLITUS
     Route: 048
     Dates: start: 201604, end: 20161028
  10. VI-DE 3 [Concomitant]
     Active Substance: CHOLECALCIFEROL
     Dosage: DOSE 5
     Route: 065
     Dates: end: 20161028
  11. IMPORTAL [Concomitant]
     Active Substance: LACTITOL
     Dosage: 2 X 15ML
     Route: 065

REACTIONS (5)
  - Bicytopenia [Fatal]
  - Septic shock [Fatal]
  - Thrombocytopenia [Fatal]
  - Agranulocytosis [Fatal]
  - Leukopenia [Fatal]

NARRATIVE: CASE EVENT DATE: 201610
